FAERS Safety Report 21503153 (Version 1)
Quarter: 2022Q4

REPORT INFORMATION
  Report Type: Other
  Country: None (occurrence: US)
  Receive Date: 20221025
  Receipt Date: 20221025
  Transmission Date: 20230113
  Serious: Yes (Death)
  Sender: FDA-Public Use
  Company Number: US-B.Braun Medical Inc.-2134155

PATIENT
  Age: 76 Year
  Sex: Female

DRUGS (1)
  1. MAGNESIUM SULFATE IN DEXTROSE [Suspect]
     Active Substance: MAGNESIUM SULFATE

REACTIONS (2)
  - Death [Fatal]
  - Intentional product misuse [Fatal]
